FAERS Safety Report 21781578 (Version 1)
Quarter: 2022Q4

REPORT INFORMATION
  Report Type: Spontaneous
  Country: US (occurrence: None)
  Receive Date: 20221222
  Receipt Date: 20221222
  Transmission Date: 20230113
  Serious: Yes (Hospitalization)
  Sender: FDA-Public Use
  Company Number: None

PATIENT
  Age: 9 Year
  Sex: Male

DRUGS (3)
  1. DEFERASIROX [Suspect]
     Active Substance: DEFERASIROX
     Indication: Haemoglobin E-thalassaemia disease
     Dosage: 180 MG ORAL??TAKE 4 TABLETS (720 MG) BY MOUTH DAILY?
     Route: 048
  2. FERRIPROX SOL [Concomitant]
  3. FOLIC ACID [Concomitant]
     Active Substance: FOLIC ACID

REACTIONS (5)
  - Depressed mood [None]
  - Anxiety [None]
  - Irritability [None]
  - Product dose omission issue [None]
  - Product prescribing issue [None]

NARRATIVE: CASE EVENT DATE: 20220930
